FAERS Safety Report 16813894 (Version 1)
Quarter: 2019Q3

REPORT INFORMATION
  Report Type: Spontaneous
  Country: RU (occurrence: RU)
  Receive Date: 20190917
  Receipt Date: 20190917
  Transmission Date: 20191005
  Serious: Yes (Death, Other)
  Sender: FDA-Public Use
  Company Number: RU-SA-2019SA256715

PATIENT
  Age: 17 Year
  Sex: Male

DRUGS (9)
  1. LEMTRADA [Suspect]
     Active Substance: ALEMTUZUMAB
     Indication: IMMUNODEFICIENCY
  2. LEMTRADA [Suspect]
     Active Substance: ALEMTUZUMAB
     Indication: BONE MARROW TRANSPLANT
  3. FLUDARABINE PHOSPHATE. [Suspect]
     Active Substance: FLUDARABINE PHOSPHATE
     Indication: BONE MARROW TRANSPLANT
  4. MELPHALAN. [Suspect]
     Active Substance: MELPHALAN
     Indication: IMMUNODEFICIENCY
  5. FLUDARABINE PHOSPHATE. [Suspect]
     Active Substance: FLUDARABINE PHOSPHATE
     Indication: IMMUNODEFICIENCY
  6. FLUDARABINE PHOSPHATE. [Suspect]
     Active Substance: FLUDARABINE PHOSPHATE
     Indication: CHOLANGITIS SCLEROSING
  7. MELPHALAN. [Suspect]
     Active Substance: MELPHALAN
     Indication: CHOLANGITIS SCLEROSING
  8. MELPHALAN. [Suspect]
     Active Substance: MELPHALAN
     Indication: BONE MARROW TRANSPLANT
  9. LEMTRADA [Suspect]
     Active Substance: ALEMTUZUMAB
     Indication: CHOLANGITIS SCLEROSING
     Dosage: UNK, UNK
     Route: 041

REACTIONS (3)
  - Haemolysis [Fatal]
  - Encephalitis [Fatal]
  - Off label use [Unknown]
